FAERS Safety Report 9791872 (Version 2)
Quarter: 2014Q1

REPORT INFORMATION
  Report Type: Spontaneous
  Country: US (occurrence: US)
  Receive Date: 20140102
  Receipt Date: 20140304
  Transmission Date: 20141002
  Serious: No
  Sender: FDA-Public Use
  Company Number: US-PFIZER INC-2013374672

PATIENT
  Sex: 0

DRUGS (3)
  1. XELJANZ [Suspect]
     Indication: RHEUMATOID ARTHRITIS
     Dosage: UNK
  2. SUMATRIPTAN SUCCINATE [Interacting]
     Indication: MIGRAINE
     Dosage: UNK
  3. IBUPROFEN [Concomitant]
     Indication: PAIN
     Dosage: 800 ML, UNK

REACTIONS (1)
  - Drug interaction [Unknown]
